FAERS Safety Report 12732527 (Version 3)
Quarter: 2020Q2

REPORT INFORMATION
  Report Type: Spontaneous
  Country: US (occurrence: US)
  Receive Date: 20160912
  Receipt Date: 20200406
  Transmission Date: 20200713
  Serious: Yes (Hospitalization)
  Sender: FDA-Public Use
  Company Number: US-JNJFOC-20160812856

PATIENT
  Age: 48 Year
  Sex: Female

DRUGS (2)
  1. XARELTO [Suspect]
     Active Substance: RIVAROXABAN
     Indication: DEEP VEIN THROMBOSIS
     Route: 048
     Dates: start: 20141112, end: 20141117
  2. ASPRIN [Suspect]
     Active Substance: ASPIRIN
     Route: 048

REACTIONS (1)
  - Retroperitoneal haematoma [Not Recovered/Not Resolved]

NARRATIVE: CASE EVENT DATE: 20141116
